FAERS Safety Report 9113292 (Version 1)
Quarter: 2013Q1

REPORT INFORMATION
  Report Type: Spontaneous
  Country: US (occurrence: US)
  Receive Date: 20130211
  Receipt Date: 20130211
  Transmission Date: 20140127
  Serious: No
  Sender: FDA-Public Use
  Company Number: US-009507513-1302USA003815

PATIENT
  Age: 47 Year
  Sex: Female

DRUGS (2)
  1. DULERA [Suspect]
     Indication: BRONCHITIS
     Dosage: UNK
     Route: 055
     Dates: start: 20130204, end: 20130205
  2. THYROID [Concomitant]

REACTIONS (8)
  - Asthenia [Recovering/Resolving]
  - Feeling jittery [Recovering/Resolving]
  - General symptom [Recovering/Resolving]
  - Malaise [Recovering/Resolving]
  - Headache [Recovering/Resolving]
  - Dizziness [Recovered/Resolved]
  - Headache [Recovering/Resolving]
  - Dizziness [Recovering/Resolving]
